FAERS Safety Report 21066779 (Version 1)
Quarter: 2022Q3

REPORT INFORMATION
  Report Type: Spontaneous
  Country: CN (occurrence: None)
  Receive Date: 20220712
  Receipt Date: 20220712
  Transmission Date: 20221027
  Serious: Yes (Life-Threatening)
  Sender: FDA-Public Use
  Company Number: CN-ROCHE-3135130

PATIENT
  Age: 60 Year
  Sex: Female

DRUGS (1)
  1. KADCYLA [Suspect]
     Active Substance: ADO-TRASTUZUMAB EMTANSINE
     Indication: Breast cancer
     Route: 065
     Dates: start: 20220126

REACTIONS (3)
  - Platelet count decreased [Recovering/Resolving]
  - Gastrointestinal disorder [Unknown]
  - Haematochezia [Unknown]

NARRATIVE: CASE EVENT DATE: 20220707
